FAERS Safety Report 23962401 (Version 1)
Quarter: 2024Q2

REPORT INFORMATION
  Report Type: Spontaneous
  Country: US (occurrence: None)
  Receive Date: 20240611
  Receipt Date: 20240611
  Transmission Date: 20240715
  Serious: No
  Sender: FDA-Public Use
  Company Number: None

PATIENT
  Age: 73 Year
  Sex: Female

DRUGS (1)
  1. ADEMPAS [Suspect]
     Active Substance: RIOCIGUAT
     Indication: Pulmonary hypertension
     Dosage: FREQUENCY : 3 TIMES A DAY;?
     Route: 048
     Dates: start: 20240321

REACTIONS (5)
  - Dizziness [None]
  - Fatigue [None]
  - Heart rate abnormal [None]
  - Blood pressure decreased [None]
  - Tremor [None]

NARRATIVE: CASE EVENT DATE: 20240610
